FAERS Safety Report 5915028-X (Version None)
Quarter: 2008Q4

REPORT INFORMATION
  Report Type: 
  Country: None (occurrence: None)
  Receive Date: 20081010
  Receipt Date: 20081007
  Transmission Date: 20090506
  Serious: Yes (Other)
  Sender: FDA-Public Use
  Company Number: US-ABBOTT-08P-163-0480497-00

PATIENT
  Sex: Female
  Weight: 77.18 kg

DRUGS (7)
  1. HUMIRA [Suspect]
     Indication: PSORIATIC ARTHROPATHY
     Route: 058
     Dates: start: 20080606, end: 20080702
  2. VITAMIN TAB [Concomitant]
     Indication: DRUG USE FOR UNKNOWN INDICATION
     Route: 048
     Dates: start: 20080606, end: 20080819
  3. PREDNISONE TAB [Concomitant]
     Indication: PSORIATIC ARTHROPATHY
     Route: 048
     Dates: start: 20080702, end: 20080703
  4. PREDNISONE TAB [Concomitant]
     Route: 048
     Dates: start: 20080704, end: 20080718
  5. AUGMENTIN '125' [Concomitant]
     Indication: INFECTION
     Route: 048
     Dates: start: 20080618, end: 20080627
  6. AUGMENTIN '125' [Concomitant]
     Route: 048
     Dates: start: 20080718, end: 20080727
  7. VENLAFAXINE HCL [Concomitant]
     Indication: POSTPARTUM DEPRESSION
     Route: 048
     Dates: start: 20080502, end: 20080819

REACTIONS (3)
  - ABORTION SPONTANEOUS [None]
  - CELLULITIS [None]
  - POSTPARTUM DEPRESSION [None]
